FAERS Safety Report 20884698 (Version 2)
Quarter: 2022Q2

REPORT INFORMATION
  Report Type: Spontaneous
  Country: US (occurrence: US)
  Receive Date: 20220527
  Receipt Date: 20220621
  Transmission Date: 20220720
  Serious: Yes (Other)
  Sender: FDA-Public Use
  Company Number: US-PFIZER INC-202200765951

PATIENT
  Age: 74 Year
  Sex: Male
  Weight: 79.365 kg

DRUGS (1)
  1. SILDENAFIL CITRATE [Suspect]
     Active Substance: SILDENAFIL CITRATE
     Indication: Erectile dysfunction
     Dosage: 100 MG
     Dates: start: 20220422

REACTIONS (2)
  - Prostate cancer [Unknown]
  - Drug ineffective [Unknown]
